FAERS Safety Report 10049487 (Version 1)
Quarter: 2014Q2

REPORT INFORMATION
  Report Type: Spontaneous
  Country: US (occurrence: US)
  Receive Date: 20140401
  Receipt Date: 20140401
  Transmission Date: 20141212
  Serious: No
  Sender: FDA-Public Use
  Company Number: US-BAYER-2014-048310

PATIENT
  Age: 76 Year
  Sex: Female

DRUGS (1)
  1. GADAVIST [Suspect]
     Indication: NUCLEAR MAGNETIC RESONANCE IMAGING
     Dosage: 9 ML, ONCE
     Dates: start: 20140319, end: 20140319

REACTIONS (2)
  - Chest discomfort [None]
  - Hyperhidrosis [None]
